FAERS Safety Report 12932275 (Version 1)
Quarter: 2016Q4

REPORT INFORMATION
  Report Type: Report from Study
  Country: CN (occurrence: CN)
  Receive Date: 20161111
  Receipt Date: 20161111
  Transmission Date: 20170207
  Serious: Yes (Death)
  Sender: FDA-Public Use
  Company Number: CN-ROCHE-1853545

PATIENT

DRUGS (1)
  1. ALTEPLASE [Suspect]
     Active Substance: ALTEPLASE
     Indication: PRODUCT USED FOR UNKNOWN INDICATION
     Dosage: 0.1 MG/KG. 10% OF TOTAL DOSE THROUGH INJECTION IN 1 MINUTE, THE REST THROUGH MICORPUMP IN 1 HOUR
     Route: 042

REACTIONS (1)
  - Death [Fatal]
